FAERS Safety Report 9207554 (Version 1)
Quarter: 2013Q2

REPORT INFORMATION
  Report Type: Spontaneous
  Country: US (occurrence: None)
  Receive Date: 20130402
  Receipt Date: 20130402
  Transmission Date: 20140414
  Serious: Yes (Life-Threatening)
  Sender: FDA-Public Use
  Company Number: None

PATIENT
  Age: 65 Year
  Sex: Female
  Weight: 50 kg

DRUGS (1)
  1. PROLIA [Suspect]
     Indication: OSTEOPOROSIS
     Route: 042
     Dates: start: 20130116, end: 20130116

REACTIONS (4)
  - Metabolic acidosis [None]
  - Blood calcium decreased [None]
  - Blood albumin decreased [None]
  - Calcium ionised decreased [None]
